FAERS Safety Report 5913719-8 (Version None)
Quarter: 2008Q4

REPORT INFORMATION
  Report Type: 
  Country: None (occurrence: None)
  Receive Date: 20081007
  Receipt Date: 20080916
  Transmission Date: 20090506
  Serious: Yes (Other)
  Sender: FDA-Public Use
  Company Number: 20080270 /

PATIENT
  Age: 38 Year
  Sex: Female

DRUGS (1)
  1. VENOFER [Suspect]
     Dosage: 200MG DURING 5 DAYS

REACTIONS (1)
  - THROMBOPHLEBITIS [None]
